FAERS Safety Report 9166133 (Version 1)
Quarter: 2013Q1

REPORT INFORMATION
  Report Type: Spontaneous
  Country: GB (occurrence: None)
  Receive Date: 20130301
  Receipt Date: 20130301
  Transmission Date: 20140127
  Serious: Yes (Hospitalization, Disabling)
  Sender: FDA-Public Use
  Company Number: 2013-0891

PATIENT
  Age: 38 Year
  Sex: Female

DRUGS (2)
  1. BOTULINUM TOXIN TYPE A NOS (BOTULINUM TOOXIN TYPE A) (BOTULINUM TOXIN TYPE A) [Suspect]
     Indication: HYPERTONIC BLADDER
     Dosage: NOT REPORTED (1 IN 1 CYCLE (S)), INTRAVESCIAL
     Route: 043
     Dates: start: 201207, end: 201207
  2. BOTULINUM TOXIN TYPE A NOS (BOTULINUM TOOXIN TYPE A) (BOTULINUM TOXIN TYPE A) [Suspect]
     Indication: OFF LABEL USE
     Dosage: NOT REPORTED (1 IN 1 CYCLE (S)), INTRAVESCIAL
     Route: 043
     Dates: start: 201207, end: 201207

REACTIONS (4)
  - Myelitis transverse [None]
  - Hypoaesthesia [None]
  - Muscular weakness [None]
  - Off label use [None]
